FAERS Safety Report 25836835 (Version 3)
Quarter: 2025Q4

REPORT INFORMATION
  Report Type: Spontaneous
  Country: CA (occurrence: CA)
  Receive Date: 20250923
  Receipt Date: 20251114
  Transmission Date: 20260118
  Serious: Yes (Hospitalization)
  Sender: PFIZER
  Company Number: CA-PFIZER INC-202500082363

PATIENT
  Age: 50 Year
  Sex: Female
  Weight: 81.6 kg

DRUGS (1)
  1. IXIFI [Suspect]
     Active Substance: INFLIXIMAB-QBTX
     Indication: Colitis ulcerative
     Dosage: 700 MG, EVERY 8 WEEKS
     Route: 042
     Dates: start: 20250721

REACTIONS (4)
  - Pain [Unknown]
  - Viral infection [Not Recovered/Not Resolved]
  - Off label use [Unknown]
  - Intentional product use issue [Unknown]

NARRATIVE: CASE EVENT DATE: 20250901
